FAERS Safety Report 4553487-8 (Version None)
Quarter: 2005Q1

REPORT INFORMATION
  Report Type: 
  Country: None (occurrence: None)
  Receive Date: 20050113
  Receipt Date: 20050107
  Transmission Date: 20050727
  Serious: Yes (Hospitalization)
  Sender: FDA-Public Use
  Company Number: B0363766A

PATIENT
  Age: 61 Year
  Sex: Female

DRUGS (4)
  1. CEFAZOLIN SODIUM [Suspect]
  2. MENATRENONE (MENATRENONE) [Suspect]
  3. CARBAZOCRHOME NA SULPHON (CARBAZOCHROME NA SULPHON) [Suspect]
  4. TRANEXAMIC ACID (TRANEXAMIC ACID) [Suspect]

REACTIONS (3)
  - HEPATIC NEOPLASM MALIGNANT [None]
  - HEPATIC TRAUMA [None]
  - HEPATITIS C [None]
